FAERS Safety Report 8189368-0 (Version None)
Quarter: 2012Q1

REPORT INFORMATION
  Report Type: 
  Country: None (occurrence: None)
  Receive Date: 20120307
  Receipt Date: 20120228
  Transmission Date: 20120608
  Serious: Yes (Other)
  Sender: FDA-Public Use
  Company Number: US-BAYER-2012-000104

PATIENT
  Age: 46 Year
  Sex: Female

DRUGS (9)
  1. NEURONTIN [Concomitant]
     Dosage: 200 MG, UNK
     Route: 048
  2. GLUCOPHAGE [Concomitant]
     Dosage: 200 MG, QD
     Route: 048
  3. MAGNESIUM [Concomitant]
     Dosage: UNK UNK, QD
     Route: 048
  4. ACETAMINOPHEN [Concomitant]
  5. NEXIUM [Concomitant]
     Dosage: UNK UNK, QD
     Route: 048
  6. SOMA [Concomitant]
  7. YAZ [Suspect]
     Dosage: UNK
     Dates: start: 20081201, end: 20090101
  8. MULTIVITAMIN PREPARATION + MINERAL SUPPLEMENT [Concomitant]
     Dosage: UNK UNK, QD
     Route: 048
  9. CELEBREX [Concomitant]
     Dosage: 200 MG, QD
     Route: 048

REACTIONS (1)
  - DEEP VEIN THROMBOSIS [None]
